FAERS Safety Report 23837435 (Version 1)
Quarter: 2024Q2

REPORT INFORMATION
  Report Type: Spontaneous
  Country: GB (occurrence: GB)
  Receive Date: 20240509
  Receipt Date: 20240509
  Transmission Date: 20240716
  Serious: Yes (Other)
  Sender: FDA-Public Use
  Company Number: None

PATIENT
  Sex: Female

DRUGS (1)
  1. ROSUVASTATIN [Suspect]
     Active Substance: ROSUVASTATIN
     Indication: Product used for unknown indication
     Dosage: UNKNOWN
     Route: 065

REACTIONS (4)
  - Neuropathy peripheral [Not Recovered/Not Resolved]
  - Pain [Not Recovered/Not Resolved]
  - Poor quality sleep [Unknown]
  - Impaired quality of life [Unknown]
